FAERS Safety Report 19453807 (Version 2)
Quarter: 2021Q2

REPORT INFORMATION
  Report Type: Spontaneous
  Country: CA (occurrence: CA)
  Receive Date: 20210623
  Receipt Date: 20210630
  Transmission Date: 20210717
  Serious: Yes (Disabling)
  Sender: FDA-Public Use
  Company Number: CA-ROCHE-2851532

PATIENT
  Age: 63 Year
  Sex: Female

DRUGS (19)
  1. RITUXIMAB. [Suspect]
     Active Substance: RITUXIMAB
     Indication: EPSTEIN-BARR VIRUS ASSOCIATED LYMPHOPROLIFERATIVE DISORDER
     Route: 041
  2. VALGANCICLOVIR. [Suspect]
     Active Substance: VALGANCICLOVIR
     Indication: PRODUCT USED FOR UNKNOWN INDICATION
     Route: 065
  3. ATOVAQUONE. [Concomitant]
     Active Substance: ATOVAQUONE
     Route: 048
  4. NORMAL SALINE [Concomitant]
     Active Substance: SODIUM CHLORIDE
     Route: 042
  5. EPOETIN ALFA [Concomitant]
     Active Substance: ERYTHROPOIETIN
     Route: 058
  6. POSACONAZOLE [Concomitant]
     Active Substance: POSACONAZOLE
  7. VALACYCLOVIR [Concomitant]
     Active Substance: VALACYCLOVIR HYDROCHLORIDE
     Route: 048
  8. PANTOPRAZOLE [Concomitant]
     Active Substance: PANTOPRAZOLE
  9. AMLODIPINE [Concomitant]
     Active Substance: AMLODIPINE BESYLATE
  10. MAGNESIUM OXIDE. [Concomitant]
     Active Substance: MAGNESIUM OXIDE
  11. URSODIOL. [Concomitant]
     Active Substance: URSODIOL
  12. ZOMETA [Concomitant]
     Active Substance: ZOLEDRONIC ACID
     Route: 042
  13. ERGOCALCIFEROL. [Concomitant]
     Active Substance: ERGOCALCIFEROL
  14. METOPROLOL. [Concomitant]
     Active Substance: METOPROLOL
  15. FOLIC ACID. [Concomitant]
     Active Substance: FOLIC ACID
  16. TACROLIMUS. [Concomitant]
     Active Substance: TACROLIMUS
     Route: 065
  17. DENOSUMAB [Concomitant]
     Active Substance: DENOSUMAB
     Route: 058
  18. K?DUR [Concomitant]
     Active Substance: POTASSIUM CHLORIDE
  19. ZINC. [Concomitant]
     Active Substance: ZINC

REACTIONS (17)
  - Cough [Not Recovered/Not Resolved]
  - Hydronephrosis [Not Recovered/Not Resolved]
  - Renal disorder [Not Recovered/Not Resolved]
  - Constipation [Not Recovered/Not Resolved]
  - Diastolic dysfunction [Not Recovered/Not Resolved]
  - Off label use [Unknown]
  - Palpitations [Not Recovered/Not Resolved]
  - Scab [Not Recovered/Not Resolved]
  - Diarrhoea [Not Recovered/Not Resolved]
  - Dyspnoea [Not Recovered/Not Resolved]
  - Asthenia [Not Recovered/Not Resolved]
  - Fatigue [Not Recovered/Not Resolved]
  - Hepatic enzyme increased [Not Recovered/Not Resolved]
  - Pyrexia [Not Recovered/Not Resolved]
  - Blood creatinine increased [Not Recovered/Not Resolved]
  - Cytopenia [Not Recovered/Not Resolved]
  - Skin papilloma [Not Recovered/Not Resolved]
